FAERS Safety Report 7379669-8 (Version None)
Quarter: 2011Q1

REPORT INFORMATION
  Report Type: 
  Country: None (occurrence: None)
  Receive Date: 20110329
  Receipt Date: 20110322
  Transmission Date: 20110831
  Serious: Yes (Other)
  Sender: FDA-Public Use
  Company Number: US-PFIZER INC-2011020927

PATIENT
  Sex: Female

DRUGS (2)
  1. ESTRING [Suspect]
     Indication: SKIN FISSURES
     Dosage: UNK
     Dates: start: 20110128
  2. ESTRING [Suspect]
     Indication: VULVOVAGINAL DRYNESS
     Dosage: UNK
     Route: 067
     Dates: start: 20110104, end: 20110126

REACTIONS (8)
  - NERVOUSNESS [None]
  - VAGINAL STRICTURE [None]
  - MUSCLE SPASMS [None]
  - PELVIC PAIN [None]
  - BLOOD PRESSURE INCREASED [None]
  - ABDOMINAL PAIN [None]
  - DISCOMFORT [None]
  - VULVOVAGINAL PAIN [None]
